FAERS Safety Report 10503731 (Version 1)
Quarter: 2014Q4

REPORT INFORMATION
  Report Type: Spontaneous
  Country: US (occurrence: None)
  Receive Date: 20141007
  Receipt Date: 20141007
  Transmission Date: 20150528
  Serious: No
  Sender: FDA-Public Use
  Company Number: None

PATIENT
  Age: 65 Year
  Sex: Female
  Weight: 81.65 kg

DRUGS (1)
  1. LAMISIL [Suspect]
     Active Substance: TERBINAFINE HYDROCHLORIDE
     Indication: FUNGAL INFECTION
     Dosage: YES TWICE DAILY TAKEN BY MOUTH
     Route: 048
     Dates: start: 20140626

REACTIONS (3)
  - Solar urticaria [None]
  - Urticaria [None]
  - Photosensitivity reaction [None]

NARRATIVE: CASE EVENT DATE: 20140711
